FAERS Safety Report 4788892-8 (Version None)
Quarter: 2005Q4

REPORT INFORMATION
  Report Type: 
  Country: None (occurrence: None)
  Receive Date: 20051004
  Receipt Date: 20050920
  Transmission Date: 20060501
  Serious: Yes (Death)
  Sender: FDA-Public Use
  Company Number: 217926

PATIENT
  Age: 51 Year
  Sex: Male

DRUGS (6)
  1. RITUXAN [Suspect]
     Indication: IDIOPATHIC THROMBOCYTOPENIC PURPURA
     Dosage: 700 MG, 1/WEEK, INTRAVENOUS
     Route: 042
     Dates: start: 20030805, end: 20030909
  2. SULFAMETHOXAZOLE + TRIMETHOPRIM [Suspect]
     Indication: PNEUMONIA BACTERIAL
     Dosage: ORAL
     Route: 048
     Dates: start: 20031116, end: 20031205
  3. URSODIOL [Concomitant]
  4. LIVACT ((GENERIC COMPONENTS(S) NOT KNOWN) [Concomitant]
  5. GLYCYRON #2 (METHIONINE, LICORICE, GLYCINE, CALCIUM CARBONATE) [Concomitant]
  6. PREDNISONE [Concomitant]

REACTIONS (24)
  - ANTI-HBC IGM ANTIBODY POSITIVE [None]
  - BLOOD ALBUMIN DECREASED [None]
  - BLOOD BILIRUBIN INCREASED [None]
  - BLOOD PRESSURE DIASTOLIC INCREASED [None]
  - CHOLELITHIASIS [None]
  - CHOLESTASIS [None]
  - CHROMATURIA [None]
  - COMA HEPATIC [None]
  - EVAN'S SYNDROME [None]
  - HEPATIC FUNCTION ABNORMAL [None]
  - HEPATIC STEATOSIS [None]
  - HEPATITIS B SURFACE ANTIGEN POSITIVE [None]
  - HISTIOCYTOSIS HAEMATOPHAGIC [None]
  - INFLAMMATION [None]
  - LIVER DISORDER [None]
  - MULTI-ORGAN FAILURE [None]
  - MYOCARDIAC ABSCESS [None]
  - NOCARDIOSIS [None]
  - PLATELET COUNT DECREASED [None]
  - PNEUMONIA [None]
  - PNEUMONIA ASPERGILLUS [None]
  - PROTEIN TOTAL DECREASED [None]
  - RED BLOOD CELL COUNT DECREASED [None]
  - SEPSIS [None]
